FAERS Safety Report 5143507-4 (Version None)
Quarter: 2006Q4

REPORT INFORMATION
  Report Type: 
  Country: None (occurrence: None)
  Receive Date: 20061103
  Receipt Date: 20061031
  Transmission Date: 20070319
  Serious: Yes (Other)
  Sender: FDA-Public Use
  Company Number: CN-GLAXOSMITHKLINE-B0445079A

PATIENT
  Age: 44 Year
  Sex: Male

DRUGS (1)
  1. HEPTODIN [Suspect]
     Dosage: 100MG PER DAY
     Route: 048
     Dates: start: 20021001

REACTIONS (2)
  - ANALGESIC EFFECT [None]
  - NEUROPATHY PERIPHERAL [None]
